FAERS Safety Report 13765805 (Version 2)
Quarter: 2017Q3

REPORT INFORMATION
  Report Type: Report from Study
  Country: DE (occurrence: DE)
  Receive Date: 20170718
  Receipt Date: 20170809
  Transmission Date: 20171127
  Serious: Yes (Life-Threatening, Other)
  Sender: FDA-Public Use
  Company Number: DE-AMGEN-DEUNI2017108019

PATIENT
  Age: 55 Year
  Sex: Female

DRUGS (2)
  1. PREDNISOLON [Concomitant]
     Active Substance: PREDNISOLONE
     Dosage: UNK
  2. ETANERCEPT [Suspect]
     Active Substance: ETANERCEPT
     Indication: RHEUMATOID ARTHRITIS
     Dosage: 50 MG, QWK
     Route: 065
     Dates: start: 20160915

REACTIONS (4)
  - Neutropenia [Not Recovered/Not Resolved]
  - Large granular lymphocytosis [Not Recovered/Not Resolved]
  - Lymphoma [Unknown]
  - B-cell unclassifiable lymphoma low grade [Not Recovered/Not Resolved]

NARRATIVE: CASE EVENT DATE: 201601
